FAERS Safety Report 4618786-X (Version None)
Quarter: 2005Q1

REPORT INFORMATION
  Report Type: 
  Country: None (occurrence: None)
  Receive Date: 20050323
  Receipt Date: 20050310
  Transmission Date: 20050727
  Serious: Yes (Hospitalization, Disabling)
  Sender: FDA-Public Use
  Company Number: 2005-126239-NL

PATIENT
  Age: 35 Year
  Sex: Female
  Weight: 63.6 kg

DRUGS (4)
  1. CYCLESSA [Suspect]
     Indication: MENSTRUAL DISORDER
     Dosage: DF DAILY ORAL
     Route: 048
     Dates: start: 20031201, end: 20040131
  2. ALESSE [Suspect]
     Dosage: DF DAILY ORAL
     Route: 048
     Dates: start: 20030901, end: 20031101
  3. ORTHO EVRA [Suspect]
     Dosage: DF DAILY TRANSDERMAL
     Route: 062
     Dates: start: 20030801, end: 20030901
  4. FERROUS FURAMATE [Concomitant]

REACTIONS (12)
  - DEPRESSION [None]
  - DISORIENTATION [None]
  - DIZZINESS [None]
  - DYSARTHRIA [None]
  - FEELING ABNORMAL [None]
  - HEARING IMPAIRED [None]
  - LOSS OF CONSCIOUSNESS [None]
  - ROAD TRAFFIC ACCIDENT [None]
  - SINUS HEADACHE [None]
  - TRANSIENT ISCHAEMIC ATTACK [None]
  - UTERINE LEIOMYOMA [None]
  - VAGINAL HAEMORRHAGE [None]
